FAERS Safety Report 4630034-3 (Version None)
Quarter: 2005Q2

REPORT INFORMATION
  Report Type: 
  Country: None (occurrence: None)
  Receive Date: 20050406
  Receipt Date: 20050330
  Transmission Date: 20051028
  Serious: Yes (Death)
  Sender: FDA-Public Use
  Company Number: PHO-2005-008

PATIENT
  Age: 76 Year
  Sex: Male

DRUGS (10)
  1. PHOTOFRIN [Suspect]
     Indication: BILE DUCT CANCER
     Dosage: 180 MG (1 INJECTION)
     Route: 042
     Dates: start: 20050309, end: 20050309
  2. PHOTOFRIN [Suspect]
     Indication: PHOTODYNAMIC THERAPY
     Dosage: 180 MG (1 INJECTION)
     Route: 042
     Dates: start: 20050309, end: 20050309
  3. LOSARTAN POTASSIUM [Concomitant]
  4. LANSOPRAZOLE [Concomitant]
  5. ATENOLOL [Concomitant]
  6. CIPROFLOXACIN [Concomitant]
  7. MIDAZOLAM HCL [Concomitant]
  8. FENTANYL CITRATE [Concomitant]
  9. CEFUROXIME [Concomitant]
  10. ACETAMINOPHEN [Concomitant]

REACTIONS (4)
  - ASTHENIA [None]
  - DEPRESSION [None]
  - DIET REFUSAL [None]
  - LETHARGY [None]
